FAERS Safety Report 23445434 (Version 3)
Quarter: 2024Q1

REPORT INFORMATION
  Report Type: Report from Study
  Country: CA (occurrence: None)
  Receive Date: 20240126
  Receipt Date: 20240325
  Transmission Date: 20240410
  Serious: Yes (Other)
  Sender: FDA-Public Use
  Company Number: 2024A009156

PATIENT
  Sex: Male
  Weight: 93.4 kg

DRUGS (1)
  1. IMFINZI [Suspect]
     Active Substance: DURVALUMAB
     Indication: Bile duct cancer
     Route: 042
     Dates: start: 20230921

REACTIONS (3)
  - Cardiac failure congestive [Unknown]
  - Weight decreased [Unknown]
  - C-reactive protein increased [Unknown]
